FAERS Safety Report 8296432-4 (Version None)
Quarter: 2012Q2

REPORT INFORMATION
  Report Type: 
  Country: None (occurrence: None)
  Receive Date: 20120418
  Receipt Date: 20120412
  Transmission Date: 20120825
  Serious: Yes (Hospitalization)
  Sender: FDA-Public Use
  Company Number: IE-MEDIMMUNE-MEDI-0014733

PATIENT
  Sex: Male

DRUGS (1)
  1. SYNAGIS [Suspect]
     Indication: HEART DISEASE CONGENITAL
     Route: 030
     Dates: start: 20111004, end: 20111004

REACTIONS (2)
  - CARDIAC DISORDER [None]
  - PULMONARY HYPERTENSION [None]
